FAERS Safety Report 7598395-3 (Version None)
Quarter: 2011Q3

REPORT INFORMATION
  Report Type: 
  Country: None (occurrence: None)
  Receive Date: 20110708
  Receipt Date: 20110629
  Transmission Date: 20111222
  Serious: Yes (Other)
  Sender: FDA-Public Use
  Company Number: AT-ASTRAZENECA-2011SE39010

PATIENT
  Age: 20 Year
  Sex: Male

DRUGS (5)
  1. PROPOFOL [Suspect]
     Indication: SEDATIVE THERAPY
     Dosage: 320 MG/HOUR
     Route: 042
  2. NOREPINEPHRINE BITARTRATE [Concomitant]
     Indication: SEDATIVE THERAPY
  3. FENTANYL [Concomitant]
     Indication: SEDATIVE THERAPY
  4. PROPOFOL [Suspect]
     Dosage: 100  MG/HOUR
     Route: 042
  5. MIDAZOLAM HCL [Concomitant]
     Indication: SEDATIVE THERAPY

REACTIONS (1)
  - PROPOFOL INFUSION SYNDROME [None]
